FAERS Safety Report 24866895 (Version 1)
Quarter: 2025Q1

REPORT INFORMATION
  Report Type: Spontaneous
  Country: NL (occurrence: NL)
  Receive Date: 20250121
  Receipt Date: 20250121
  Transmission Date: 20250408
  Serious: Yes (Life-Threatening)
  Sender: TEVA
  Company Number: None

PATIENT
  Age: 25 Year
  Sex: Female
  Weight: 40 kg

DRUGS (1)
  1. METOCLOPRAMIDE [Suspect]
     Active Substance: METOCLOPRAMIDE
     Indication: Vomiting
     Dosage: 3 X PER DAY 1 / BRAND NAME NOT SPECIFIED
     Route: 048
     Dates: start: 20241202, end: 20241203

REACTIONS (4)
  - Seizure [Recovered/Resolved]
  - Muscle spasms [Recovered/Resolved]
  - Hyperhidrosis [Recovered/Resolved]
  - Dyskinesia [Recovered/Resolved]
